FAERS Safety Report 5655393-4 (Version None)
Quarter: 2008Q1

REPORT INFORMATION
  Report Type: 
  Country: None (occurrence: None)
  Receive Date: 20080307
  Receipt Date: 20080226
  Transmission Date: 20080703
  Serious: Yes (Disabling)
  Sender: FDA-Public Use
  Company Number: US-MERCK-0712USA08203

PATIENT
  Age: 55 Year
  Sex: Female
  Weight: 52 kg

DRUGS (8)
  1. FOSAMAX [Suspect]
     Indication: OSTEOPENIA
     Route: 048
     Dates: start: 20001101, end: 20050201
  2. FOSAMAX [Suspect]
     Indication: OSTEOPOROSIS
     Route: 048
     Dates: start: 20001101, end: 20050201
  3. ESTRATEST [Concomitant]
     Route: 065
  4. PRILOSEC [Concomitant]
     Indication: GASTROOESOPHAGEAL REFLUX DISEASE
     Route: 065
  5. ALLEGRA [Concomitant]
     Indication: RHINITIS ALLERGIC
     Route: 065
  6. BENADRYL [Concomitant]
     Route: 065
  7. LAMISIL [Concomitant]
     Indication: ONYCHOMYCOSIS
     Route: 065
  8. VITAMINS (UNSPECIFIED) [Concomitant]
     Route: 065

REACTIONS (10)
  - ALCOHOLIC LIVER DISEASE [None]
  - BLOOD PRESSURE INCREASED [None]
  - COLONIC POLYP [None]
  - DEPRESSION [None]
  - HERPES ZOSTER [None]
  - OSTEONECROSIS [None]
  - RECURRING SKIN BOILS [None]
  - RESORPTION BONE INCREASED [None]
  - RHINITIS ALLERGIC [None]
  - STAPHYLOCOCCAL INFECTION [None]
